FAERS Safety Report 21330148 (Version 1)
Quarter: 2022Q3

REPORT INFORMATION
  Report Type: Spontaneous
  Country: US (occurrence: None)
  Receive Date: 20220913
  Receipt Date: 20220913
  Transmission Date: 20221027
  Serious: Yes (Disabling)
  Sender: FDA-Public Use
  Company Number: None

PATIENT
  Age: 41 Year
  Sex: Female
  Weight: 56.7 kg

DRUGS (8)
  1. HERS MINOXIDIL [Suspect]
     Active Substance: MINOXIDIL
     Indication: Alopecia
     Dosage: FREQUENCY : TWICE A DAY;?
     Route: 061
     Dates: start: 20210523, end: 20220907
  2. GLYCOPYRROLATE [Concomitant]
     Active Substance: GLYCOPYRROLATE
  3. VITAMINS [Concomitant]
     Active Substance: VITAMINS
  4. VITAMIN D [Concomitant]
     Active Substance: VITAMIN D NOS
  5. FISH OIL [Concomitant]
  6. probiotic chews [Concomitant]
  7. Claritin-D 24hr for allergies [Concomitant]
  8. Preworkout Ghost [Concomitant]

REACTIONS (9)
  - Erythema [None]
  - Facial pain [None]
  - Anxiety [None]
  - Impaired work ability [None]
  - Hypersomnia [None]
  - Dizziness [None]
  - Headache [None]
  - Fatigue [None]
  - Apathy [None]
